FAERS Safety Report 8825042 (Version 2)
Quarter: 2015Q2

REPORT INFORMATION
  Report Type: Report from Study
  Country: US (occurrence: US)
  Receive Date: 20121004
  Receipt Date: 20150417
  Transmission Date: 20150821
  Serious: Yes (Death, Hospitalization)
  Sender: FDA-Public Use
  Company Number: US-ROCHE-1129727

PATIENT
  Sex: Female

DRUGS (15)
  1. DILAUDID [Concomitant]
     Active Substance: HYDROMORPHONE HYDROCHLORIDE
     Indication: BACK PAIN
     Route: 042
  2. MORPHINE [Concomitant]
     Active Substance: MORPHINE
  3. ZESTRIL [Concomitant]
     Active Substance: LISINOPRIL
     Route: 065
  4. DECADRON [Concomitant]
     Active Substance: DEXAMETHASONE
     Route: 042
  5. ADRIAMYCIN [Concomitant]
     Active Substance: DOXORUBICIN HYDROCHLORIDE
  6. COLACE [Concomitant]
     Active Substance: DOCUSATE SODIUM
     Dosage: AS NEEDED
     Route: 065
  7. PROTINEX [Concomitant]
     Route: 065
  8. RITUXAN [Suspect]
     Active Substance: RITUXIMAB
     Route: 042
     Dates: start: 20040922
  9. DEXAMETHASONE. [Concomitant]
     Active Substance: DEXAMETHASONE
  10. ACYCLOVIR. [Concomitant]
     Active Substance: ACYCLOVIR
     Route: 065
  11. RITUXAN [Suspect]
     Active Substance: RITUXIMAB
     Indication: PLASMA CELL MYELOMA
     Route: 042
     Dates: start: 20040805
  12. RITUXAN [Suspect]
     Active Substance: RITUXIMAB
     Indication: OFF LABEL USE
     Route: 042
     Dates: start: 20040825
  13. VINCRISTINE [Concomitant]
     Active Substance: VINCRISTINE
  14. CIPROFLOXACIN. [Concomitant]
     Active Substance: CIPROFLOXACIN
     Route: 065
  15. ACETYLCYSTEINE. [Concomitant]
     Active Substance: ACETYLCYSTEINE
     Route: 065

REACTIONS (10)
  - Depressed mood [Unknown]
  - Dysphoria [Unknown]
  - Urinary tract infection [Unknown]
  - Death [Fatal]
  - Tinnitus [Unknown]
  - Weight decreased [Unknown]
  - Asthenia [Unknown]
  - Off label use [Unknown]
  - Anxiety [Unknown]
  - Chest pain [Unknown]
